FAERS Safety Report 7128020-7 (Version None)
Quarter: 2010Q4

REPORT INFORMATION
  Report Type: 
  Country: None (occurrence: None)
  Receive Date: 20101130
  Receipt Date: 20101119
  Transmission Date: 20110411
  Serious: Yes (Other)
  Sender: FDA-Public Use
  Company Number: PHFR2010GB02027

PATIENT
  Sex: Male

DRUGS (4)
  1. CLOZARIL [Suspect]
     Indication: SCHIZOPHRENIA
     Route: 048
     Dates: start: 20100517, end: 20100810
  2. CLOZARIL [Suspect]
     Dosage: UNK
     Route: 048
  3. CLOZARIL [Suspect]
     Dosage: UNK
     Route: 048
     Dates: start: 20100915
  4. CLOZARIL [Suspect]
     Dosage: 300MG, UNK
     Route: 048

REACTIONS (6)
  - AGRANULOCYTOSIS [None]
  - DELUSION [None]
  - NEUTROPENIA [None]
  - NEUTROPHIL COUNT DECREASED [None]
  - PERSONALITY CHANGE [None]
  - WHITE BLOOD CELL COUNT DECREASED [None]
